FAERS Safety Report 5369854-9 (Version None)
Quarter: 2007Q2

REPORT INFORMATION
  Report Type: 
  Country: None (occurrence: None)
  Receive Date: 20070621
  Receipt Date: 20070612
  Transmission Date: 20071010
  Serious: Yes (Life-Threatening)
  Sender: FDA-Public Use
  Company Number: 2007SP011684

PATIENT
  Age: 70 Year
  Sex: Male

DRUGS (13)
  1. PEG-INTRON [Suspect]
     Indication: NON-HODGKIN'S LYMPHOMA
     Dosage: 35 MCG; QW; SC
     Route: 058
     Dates: start: 20020607, end: 20031030
  2. MABTHERA (RITUXIMAB) [Suspect]
     Indication: NON-HODGKIN'S LYMPHOMA
     Dosage: 600 MG; ; IV
     Route: 042
     Dates: start: 20060705, end: 20070125
  3. CYCLOPHOSPHAMIDE [Suspect]
     Indication: NON-HODGKIN'S LYMPHOMA
     Dosage: 90 MG; ; IV
     Route: 042
     Dates: start: 20020607, end: 20031030
  4. ETOPOSIDE [Suspect]
     Indication: NON-HODGKIN'S LYMPHOMA
     Dosage: 150 MG; ; IV
     Route: 042
     Dates: start: 20020607, end: 20031030
  5. FLUDARA [Suspect]
     Indication: NON-HODGKIN'S LYMPHOMA
     Dosage: 60 MG; ; PO
     Route: 048
     Dates: start: 20060705, end: 20070128
  6. DOXORUBICINE (DOXORUBICIN HYDROCHLORIDE) [Suspect]
     Indication: NON-HODGKIN'S LYMPHOMA
     Dosage: 40 MG; ; IV
     Route: 042
     Dates: start: 20020607, end: 20031030
  7. DIAMICRON [Concomitant]
  8. STAGID [Concomitant]
  9. TICLID [Concomitant]
  10. FONZYLANE [Concomitant]
  11. IRBESARTAN [Concomitant]
  12. PREDNISOLONE [Concomitant]
  13. NOVANTRONE [Concomitant]

REACTIONS (4)
  - ABDOMINAL MASS [None]
  - BLADDER CANCER [None]
  - BLADDER DISORDER [None]
  - METASTASIS [None]
